FAERS Safety Report 10188293 (Version 5)
Quarter: 2014Q2

REPORT INFORMATION
  Report Type: Spontaneous
  Country: JP (occurrence: JP)
  Receive Date: 20140522
  Receipt Date: 20140624
  Transmission Date: 20141212
  Serious: Yes (Death, Life-Threatening, Hospitalization)
  Sender: FDA-Public Use
  Company Number: JP-ROCHE-1394349

PATIENT
  Age: 72 Year
  Sex: Male
  Weight: 52 kg

DRUGS (9)
  1. PEGASYS [Suspect]
     Indication: CHRONIC HEPATITIS C
     Route: 058
     Dates: start: 20140314, end: 20140418
  2. COPEGUS [Suspect]
     Indication: CHRONIC HEPATITIS C
     Route: 048
     Dates: start: 20140314, end: 20140418
  3. SOVRIAD [Suspect]
     Indication: CHRONIC HEPATITIS C
     Route: 048
     Dates: start: 20140314, end: 20140418
  4. PILSICAINIDE HYDROCHLORIDE [Concomitant]
     Route: 065
  5. RIVAROXABAN [Concomitant]
     Dosage: DOSAGE IS UNCERTAIN
     Route: 065
  6. HYDROCHLOROTHIAZIDE/TELMISARTAN [Concomitant]
     Dosage: DOSAGE IS UNCERTAIN
     Route: 065
  7. AMLODIPINE BESILATE [Concomitant]
     Dosage: DOSAGE IS UNCERTAIN
     Route: 065
  8. LOXOPROFEN SODIUM [Concomitant]
     Dosage: DOSAGE IS UNCERTAIN
     Route: 065
  9. REBAMIPIDE [Concomitant]
     Dosage: DOSAGE IS UNCERTAIN
     Route: 065

REACTIONS (8)
  - Streptococcal infection [Fatal]
  - Multi-organ failure [Fatal]
  - Sepsis [Fatal]
  - Necrotising fasciitis [Not Recovered/Not Resolved]
  - Disseminated intravascular coagulation [Unknown]
  - Altered state of consciousness [Unknown]
  - Amylase increased [Unknown]
  - Hyperbilirubinaemia [Unknown]
